FAERS Safety Report 5022339-1 (Version None)
Quarter: 2006Q2

REPORT INFORMATION
  Report Type: 
  Country: None (occurrence: None)
  Receive Date: 20060609
  Receipt Date: 20060607
  Transmission Date: 20061013
  Serious: Yes (Life-Threatening)
  Sender: FDA-Public Use
  Company Number: PHRM2006FR01714

PATIENT
  Age: 78 Year
  Sex: Male
  Weight: 79 kg

DRUGS (9)
  1. GLEEVEC [Suspect]
     Indication: CHRONIC MYELOID LEUKAEMIA
     Dosage: 600 MG DAILY
     Route: 048
     Dates: start: 20011208, end: 20011228
  2. GLEEVEC [Suspect]
     Dosage: BETWEEN 100 MG AND 300 MG DAILY
     Route: 048
     Dates: start: 20011229, end: 20040110
  3. GLEEVEC [Suspect]
     Dosage: 300 MG DAILY
     Route: 048
     Dates: start: 20040603
  4. HYDREA [Suspect]
     Indication: CHRONIC MYELOID LEUKAEMIA
     Dosage: 1 DF DAILY
     Route: 048
     Dates: start: 20040423, end: 20040523
  5. GRANOCYTE [Concomitant]
     Dates: start: 20040101
  6. EPREX [Concomitant]
  7. ARANESP [Concomitant]
  8. LIPANTHYL [Concomitant]
     Indication: HYPERCHOLESTEROLAEMIA
     Dates: start: 19770101
  9. SERMION [Concomitant]
     Dates: start: 19960101

REACTIONS (2)
  - PROSTATE CANCER [None]
  - PROSTATIC SPECIFIC ANTIGEN ABNORMAL [None]
